FAERS Safety Report 8147433-8 (Version None)
Quarter: 2012Q1

REPORT INFORMATION
  Report Type: 
  Country: None (occurrence: None)
  Receive Date: 20120218
  Receipt Date: 20110315
  Transmission Date: 20120608
  Serious: No
  Sender: FDA-Public Use
  Company Number: US-ALLERGAN-1102037US

PATIENT
  Age: 69 Year
  Sex: Female

DRUGS (3)
  1. BOTOX COSMETIC [Suspect]
     Indication: PRODUCT USED FOR UNKNOWN INDICATION
     Dosage: UNK
     Dates: start: 20100921, end: 20100921
  2. RADIESSE [Concomitant]
     Indication: PRODUCT USED FOR UNKNOWN INDICATION
     Dosage: UNK
     Dates: start: 20101006, end: 20101006
  3. JUVEDERM ULTRA XC [Concomitant]
     Indication: SKIN WRINKLING
     Dosage: UNK
     Dates: start: 20100921, end: 20100921

REACTIONS (3)
  - ALOPECIA [None]
  - CONTUSION [None]
  - EYELID PTOSIS [None]
